FAERS Safety Report 13856857 (Version 1)
Quarter: 2017Q3

REPORT INFORMATION
  Report Type: Spontaneous
  Country: US (occurrence: US)
  Receive Date: 20170810
  Receipt Date: 20170810
  Transmission Date: 20171127
  Serious: No
  Sender: FDA-Public Use
  Company Number: US-ROCHE-1181170

PATIENT
  Age: 48 Year
  Sex: Female
  Weight: 64.01 kg

DRUGS (1)
  1. TAMIFLU [Suspect]
     Active Substance: OSELTAMIVIR PHOSPHATE
     Indication: INFLUENZA
     Route: 048
     Dates: start: 20130115, end: 20130119

REACTIONS (5)
  - Nausea [Unknown]
  - Headache [Unknown]
  - Pain [Unknown]
  - Feeling abnormal [Unknown]
  - Visual impairment [Unknown]

NARRATIVE: CASE EVENT DATE: 20130116
